FAERS Safety Report 7555258-7 (Version None)
Quarter: 2011Q2

REPORT INFORMATION
  Report Type: 
  Country: None (occurrence: None)
  Receive Date: 20110617
  Receipt Date: 20110615
  Transmission Date: 20111010
  Serious: Yes (Death, Hospitalization, Other)
  Sender: FDA-Public Use
  Company Number: PHEH2006US10901

PATIENT
  Sex: Female

DRUGS (14)
  1. PRILOSEC [Concomitant]
  2. MARINOL [Concomitant]
  3. FASLODEX [Concomitant]
     Dosage: 250 MG IM Q 4 WEEKS
  4. DECADRON [Concomitant]
     Dosage: 4MG 2 TIMES DAILY
  5. PROZAC [Concomitant]
     Dosage: 20 MG Q AM
  6. PERIDEX [Concomitant]
  7. MS CONTIN [Concomitant]
  8. PERCOCET [Concomitant]
  9. HERCEPTIN [Concomitant]
  10. RADIATION THERAPY [Concomitant]
  11. PENICILLIN VK [Concomitant]
  12. ZOMETA [Suspect]
  13. AREDIA [Suspect]
  14. AMBIEN [Concomitant]

REACTIONS (48)
  - PSYCHOTIC DISORDER [None]
  - ANXIETY [None]
  - PERIODONTAL INFECTION [None]
  - ARTHRITIS [None]
  - HIATUS HERNIA [None]
  - PHOTOPHOBIA [None]
  - OPEN WOUND [None]
  - SYNCOPE [None]
  - GASTROINTESTINAL HAEMORRHAGE [None]
  - RENAL CYST [None]
  - BALANCE DISORDER [None]
  - CENTRAL NERVOUS SYSTEM LESION [None]
  - OSTEONECROSIS OF JAW [None]
  - DECREASED INTEREST [None]
  - ASTHENIA [None]
  - CERUMEN IMPACTION [None]
  - HEADACHE [None]
  - BACK DISORDER [None]
  - PRESYNCOPE [None]
  - DEAFNESS NEUROSENSORY [None]
  - HALLUCINATION [None]
  - GENERAL PHYSICAL HEALTH DETERIORATION [None]
  - DENTAL CARIES [None]
  - ANAEMIA [None]
  - GOITRE [None]
  - TOXICITY TO VARIOUS AGENTS [None]
  - ENCEPHALOMALACIA [None]
  - FALL [None]
  - DEATH [None]
  - METASTASES TO CENTRAL NERVOUS SYSTEM [None]
  - BONE DISORDER [None]
  - DRY MOUTH [None]
  - DEHYDRATION [None]
  - EPISTAXIS [None]
  - HYPERMETABOLISM [None]
  - ARTERIOSCLEROSIS [None]
  - COLON ADENOMA [None]
  - IMPAIRED HEALING [None]
  - PAIN IN JAW [None]
  - HAEMATEMESIS [None]
  - LUNG NEOPLASM [None]
  - PAIN [None]
  - GINGIVITIS [None]
  - SINUSITIS [None]
  - OSTEORADIONECROSIS [None]
  - ULCER [None]
  - SCOLIOSIS [None]
  - OSTEOLYSIS [None]
